FAERS Safety Report 21891348 (Version 1)
Quarter: 2023Q1

REPORT INFORMATION
  Report Type: Spontaneous
  Country: BR (occurrence: BR)
  Receive Date: 20230120
  Receipt Date: 20230120
  Transmission Date: 20230418
  Serious: Yes (Life-Threatening, Hospitalization, Other)
  Sender: FDA-Public Use
  Company Number: BR-TAKEDA-2023TUS005515

PATIENT
  Age: 29 Year

DRUGS (3)
  1. MESALAMINE [Suspect]
     Active Substance: MESALAMINE
     Indication: Crohn^s disease
     Dosage: UNK
     Route: 065
  2. AZATHIOPRINE [Suspect]
     Active Substance: AZATHIOPRINE
     Indication: Crohn^s disease
     Dosage: UNK
     Route: 065
  3. INFLIXIMAB [Suspect]
     Active Substance: INFLIXIMAB
     Indication: Crohn^s disease
     Dosage: UNK
     Route: 042

REACTIONS (8)
  - Anaphylactic shock [Unknown]
  - Malnutrition [Unknown]
  - Intestinal obstruction [Unknown]
  - Ill-defined disorder [Unknown]
  - General physical health deterioration [Unknown]
  - Quality of life decreased [Unknown]
  - Drug resistance [Unknown]
  - Product use issue [Unknown]
